FAERS Safety Report 15715317 (Version 1)
Quarter: 2018Q4

REPORT INFORMATION
  Report Type: Spontaneous
  Country: US (occurrence: US)
  Receive Date: 20181212
  Receipt Date: 20181212
  Transmission Date: 20190205
  Serious: Yes (Hospitalization)
  Sender: FDA-Public Use
  Company Number: US-TEVA-2018-US-926514

PATIENT

DRUGS (1)
  1. FLUOROURACIL. [Suspect]
     Active Substance: FLUOROURACIL
     Dosage: 4500MG INFUSED OVER 2 HOURS VIA CADD PUMP
     Route: 042

REACTIONS (9)
  - Thrombocytopenia [Recovering/Resolving]
  - Bone marrow failure [Recovering/Resolving]
  - Arrhythmia [Recovering/Resolving]
  - Oedema peripheral [Recovering/Resolving]
  - Incorrect drug administration rate [Recovering/Resolving]
  - Asthenia [Recovering/Resolving]
  - Gastrointestinal disorder [Recovering/Resolving]
  - Mucosal inflammation [Recovering/Resolving]
  - Accidental overdose [Recovering/Resolving]
